FAERS Safety Report 6204453-8 (Version None)
Quarter: 2009Q2

REPORT INFORMATION
  Report Type: 
  Country: None (occurrence: None)
  Receive Date: 20090527
  Receipt Date: 20090423
  Transmission Date: 20091009
  Serious: No
  Sender: FDA-Public Use
  Company Number: US-BAYER-200911315BCC

PATIENT
  Age: 78 Year
  Sex: Female
  Weight: 67 kg

DRUGS (5)
  1. ALEVE [Suspect]
     Indication: SYNOVIAL CYST
     Route: 048
     Dates: start: 20090423
  2. ALEVE [Suspect]
     Dosage: UNIT DOSE: 440 MG
     Route: 048
     Dates: start: 20090421, end: 20090421
  3. ALEVE [Suspect]
     Dosage: UNIT DOSE: 220 MG
     Route: 048
     Dates: start: 20090420, end: 20090420
  4. ALEVE [Suspect]
     Dosage: 2 IN THE MORNING AND 1 AT NIGHT
     Route: 048
     Dates: start: 20090422, end: 20090422
  5. FENOFIBRATE [Concomitant]
     Indication: DRUG USE FOR UNKNOWN INDICATION
     Route: 065

REACTIONS (2)
  - FEELING ABNORMAL [None]
  - PAIN [None]
